FAERS Safety Report 26111688 (Version 1)
Quarter: 2025Q4

REPORT INFORMATION
  Report Type: Spontaneous
  Country: US (occurrence: None)
  Receive Date: 20251126
  Receipt Date: 20251126
  Transmission Date: 20260119
  Serious: No
  Sender: FDA-CTU
  Company Number: None

PATIENT

DRUGS (1)
  1. EMEND (FOSAPREPITANT DIMEGLUMINE) [Suspect]
     Active Substance: FOSAPREPITANT DIMEGLUMINE
     Indication: Chemotherapy

REACTIONS (6)
  - Infusion related reaction [None]
  - Unresponsive to stimuli [None]
  - Dyspnoea [None]
  - Wheezing [None]
  - Hypoxia [None]
  - Hypertension [None]
